FAERS Safety Report 6983642-9 (Version None)
Quarter: 2010Q3

REPORT INFORMATION
  Report Type: 
  Country: None (occurrence: None)
  Receive Date: 20100914
  Receipt Date: 20081103
  Transmission Date: 20110219
  Serious: No
  Sender: FDA-Public Use
  Company Number: US-WYE-H06653008

PATIENT
  Sex: Female
  Weight: 68.1 kg

DRUGS (3)
  1. ADVIL LIQUI-GELS [Suspect]
     Indication: PAIN
     Dosage: 1/2 CAPSULE X 1
     Route: 048
     Dates: start: 20081103, end: 20081103
  2. PLAVIX [Concomitant]
  3. SIMVASTATIN [Concomitant]

REACTIONS (3)
  - DRUG ADMINISTRATION ERROR [None]
  - GLOSSODYNIA [None]
  - THROAT IRRITATION [None]
